FAERS Safety Report 13058998 (Version 3)
Quarter: 2017Q1

REPORT INFORMATION
  Report Type: Spontaneous
  Country: IT (occurrence: IT)
  Receive Date: 20161223
  Receipt Date: 20170113
  Transmission Date: 20170428
  Serious: Yes (Death, Hospitalization, Other)
  Sender: FDA-Public Use
  Company Number: IT-GLAXOSMITHKLINE-IT2016GSK189190

PATIENT
  Age: 80 Year
  Sex: Female

DRUGS (9)
  1. KLACID [Suspect]
     Active Substance: CLARITHROMYCIN
     Indication: TONSILLITIS
     Dosage: 500 MG, QD
     Route: 048
     Dates: start: 20161203, end: 20161210
  2. LERCANIDIPINE [Concomitant]
     Active Substance: LERCANIDIPINE
     Indication: ESSENTIAL HYPERTENSION
     Dosage: 10 MG, UNK
     Route: 048
  3. CIPROXIN [Suspect]
     Active Substance: CIPROFLOXACIN
     Indication: CYSTITIS
     Dosage: 500 MG, QD
     Route: 048
     Dates: start: 20161127, end: 20161203
  4. ZOVIRAX [Suspect]
     Active Substance: ACYCLOVIR
     Indication: HERPES VIRUS INFECTION
     Dosage: 400 MG, QD
     Route: 048
     Dates: start: 20161203, end: 20161210
  5. ROCEPHINE [Suspect]
     Active Substance: CEFTRIAXONE SODIUM
     Indication: URINARY TRACT INFECTION
     Dosage: 1 G, QD
     Route: 042
     Dates: start: 20161123, end: 20161124
  6. EBIXA [Concomitant]
     Active Substance: MEMANTINE HYDROCHLORIDE
     Indication: DEMENTIA OF THE ALZHEIMER^S TYPE, UNCOMPLICATED
     Dosage: 20 MG, QD
     Route: 048
     Dates: start: 20131201, end: 20161213
  7. KARVEZIDE [Concomitant]
     Active Substance: HYDROCHLOROTHIAZIDE\IRBESARTAN
     Indication: ESSENTIAL HYPERTENSION
     Dosage: 300 MG, QD
     Route: 048
     Dates: start: 20001201, end: 20161213
  8. BENTELAN [Concomitant]
     Active Substance: BETAMETHASONE SODIUM PHOSPHATE
     Dosage: 4 MG, UNK
     Route: 042
     Dates: start: 20161125, end: 20161126
  9. MEMAC [Concomitant]
     Active Substance: DONEPEZIL HYDROCHLORIDE
     Indication: DEMENTIA OF THE ALZHEIMER^S TYPE, UNCOMPLICATED
     Dosage: 5 MG, UNK
     Route: 048

REACTIONS (1)
  - Toxic epidermal necrolysis [Fatal]

NARRATIVE: CASE EVENT DATE: 20161213
